FAERS Safety Report 12281506 (Version 1)
Quarter: 2016Q2

REPORT INFORMATION
  Report Type: Spontaneous
  Country: US (occurrence: None)
  Receive Date: 20160418
  Receipt Date: 20160418
  Transmission Date: 20160815
  Serious: Yes (Life-Threatening, Hospitalization)
  Sender: FDA-Public Use
  Company Number: None

PATIENT
  Age: 71 Year
  Sex: Male
  Weight: 106.9 kg

DRUGS (1)
  1. HEPARIN [Suspect]
     Active Substance: HEPARIN SODIUM
     Indication: DEEP VEIN THROMBOSIS
     Dosage: 5000 UNITS TID SQ
     Route: 058
     Dates: start: 20160316, end: 20160318

REACTIONS (10)
  - Condition aggravated [None]
  - Acute myocardial infarction [None]
  - Anaemia [None]
  - Gastric ulcer [None]
  - Hypotension [None]
  - Gastric haemorrhage [None]
  - Somnolence [None]
  - Troponin increased [None]
  - Gastritis erosive [None]
  - Respiratory distress [None]

NARRATIVE: CASE EVENT DATE: 20160317
